FAERS Safety Report 14007113 (Version 14)
Quarter: 2022Q4

REPORT INFORMATION
  Report Type: Spontaneous
  Country: US (occurrence: US)
  Receive Date: 20170925
  Receipt Date: 20221208
  Transmission Date: 20230113
  Serious: No
  Sender: FDA-Public Use
  Company Number: US-PFIZER INC-2017407271

PATIENT
  Age: 50 Year
  Sex: Male
  Weight: 81.65 kg

DRUGS (7)
  1. DEPO-TESTOSTERONE [Suspect]
     Active Substance: TESTOSTERONE CYPIONATE
     Indication: Blood testosterone decreased
     Dosage: BETWEEN 150 TO 200MG ONCE A WEEK, CYCLIC
  2. DEPO-TESTOSTERONE [Suspect]
     Active Substance: TESTOSTERONE CYPIONATE
     Dosage: 1 DF, 2X/WEEK
  3. DEPO-TESTOSTERONE [Suspect]
     Active Substance: TESTOSTERONE CYPIONATE
     Dosage: 1 DF, CYCLIC (SOMETIME EVERY THREE OR FOUR DAYS HALF THE AMOUNT)
  4. DEPO-TESTOSTERONE [Suspect]
     Active Substance: TESTOSTERONE CYPIONATE
     Dosage: 200 MG/ML, 10ML VIAL
  5. DEPO-TESTOSTERONE [Suspect]
     Active Substance: TESTOSTERONE CYPIONATE
     Dosage: 160 MG, WEEKLY (200MG PER ML, INJECTS 160MG PER WEEK WEEKLY)
  6. DEPO-TESTOSTERONE [Suspect]
     Active Substance: TESTOSTERONE CYPIONATE
     Dosage: 160 MG (TAKES 160MG, LIKE .8 WEEKLY)
  7. DEPO-TESTOSTERONE [Suspect]
     Active Substance: TESTOSTERONE CYPIONATE
     Dosage: 160 MG, WEEKLY

REACTIONS (20)
  - Drug ineffective [Unknown]
  - Product dose omission issue [Unknown]
  - Intentional product misuse [Unknown]
  - Product complaint [Unknown]
  - Poor quality product administered [Unknown]
  - Muscle tone disorder [Not Recovered/Not Resolved]
  - Feeling abnormal [Not Recovered/Not Resolved]
  - Weight decreased [Unknown]
  - Night sweats [Not Recovered/Not Resolved]
  - Blood testosterone abnormal [Unknown]
  - Malaise [Unknown]
  - Muscle fatigue [Unknown]
  - Injection site pain [Unknown]
  - Injection site irritation [Unknown]
  - Dizziness [Unknown]
  - Memory impairment [Unknown]
  - Muscular weakness [Unknown]
  - Myalgia [Unknown]
  - Fatigue [Not Recovered/Not Resolved]
  - Mental fatigue [Not Recovered/Not Resolved]
